FAERS Safety Report 8140915-4 (Version None)
Quarter: 2012Q1

REPORT INFORMATION
  Report Type: 
  Country: None (occurrence: None)
  Receive Date: 20120214
  Receipt Date: 20120214
  Transmission Date: 20120608
  Serious: Yes (Life-Threatening, Hospitalization)
  Sender: FDA-Public Use
  Company Number: None

PATIENT
  Age: 76 Year
  Sex: Male
  Weight: 64.5 kg

DRUGS (1)
  1. PHENYTOIN [Suspect]
     Indication: CONVULSION
     Dosage: MG PO
     Route: 048
     Dates: start: 20120115, end: 20120130

REACTIONS (3)
  - PRODUCT SUBSTITUTION ISSUE [None]
  - DYSPNOEA [None]
  - CONVULSION [None]
